FAERS Safety Report 25335386 (Version 1)
Quarter: 2025Q2

REPORT INFORMATION
  Report Type: Spontaneous
  Country: US (occurrence: US)
  Receive Date: 20250520
  Receipt Date: 20250520
  Transmission Date: 20250716
  Serious: Yes (Hospitalization)
  Sender: AUROBINDO
  Company Number: US-AUROBINDO-AUR-APL-2025-024866

PATIENT
  Age: 44 Year
  Sex: Male

DRUGS (2)
  1. ATOMOXETINE [Suspect]
     Active Substance: ATOMOXETINE
     Indication: Attention deficit hyperactivity disorder
     Route: 065
  2. ACETYLCYSTEINE [Suspect]
     Active Substance: ACETYLCYSTEINE
     Indication: Liver injury
     Route: 065

REACTIONS (3)
  - Dyspnoea [Unknown]
  - Flushing [Unknown]
  - Treatment noncompliance [Unknown]
